FAERS Safety Report 9912100 (Version 2)
Quarter: 2014Q1

REPORT INFORMATION
  Report Type: Spontaneous
  Country: US (occurrence: US)
  Receive Date: 20140219
  Receipt Date: 20140326
  Transmission Date: 20141002
  Serious: No
  Sender: FDA-Public Use
  Company Number: US-BIOMARINAP-US-2014-102529

PATIENT
  Sex: Male
  Weight: 28.6 kg

DRUGS (1)
  1. KUVAN [Suspect]
     Indication: AMINO ACID LEVEL INCREASED
     Dosage: 500 MG, QD
     Route: 048
     Dates: start: 20131105

REACTIONS (2)
  - Weight increased [Unknown]
  - Appetite disorder [Unknown]
